FAERS Safety Report 5988987-7 (Version None)
Quarter: 2008Q4

REPORT INFORMATION
  Report Type: 
  Country: None (occurrence: None)
  Receive Date: 20081210
  Receipt Date: 20081202
  Transmission Date: 20090506
  Serious: Yes (Hospitalization)
  Sender: FDA-Public Use
  Company Number: A0758723A

PATIENT
  Age: 54 Year
  Sex: Male

DRUGS (5)
  1. AVANDAMET [Suspect]
     Dosage: 1TAB TWICE PER DAY
     Route: 048
     Dates: start: 20071001, end: 20080701
  2. LANTUS [Concomitant]
  3. COZAAR [Concomitant]
  4. LIPITOR [Concomitant]
  5. GEMFIBROZIL [Concomitant]

REACTIONS (8)
  - BLOOD GLUCOSE INCREASED [None]
  - IMPAIRED WORK ABILITY [None]
  - MYOPIA [None]
  - SCAR [None]
  - THERAPEUTIC RESPONSE DECREASED [None]
  - VISION BLURRED [None]
  - VISUAL ACUITY REDUCED [None]
  - WEIGHT INCREASED [None]
